FAERS Safety Report 21928060 (Version 1)
Quarter: 2023Q1

REPORT INFORMATION
  Report Type: Spontaneous
  Country: MX (occurrence: None)
  Receive Date: 20230130
  Receipt Date: 20230130
  Transmission Date: 20230418
  Serious: Yes (Disabling)
  Sender: FDA-Public Use
  Company Number: MX-ROCHE-3272207

PATIENT
  Sex: Female
  Weight: 51 kg

DRUGS (1)
  1. RITUXIMAB [Suspect]
     Active Substance: RITUXIMAB
     Indication: Multiple sclerosis
     Dosage: DOSE AND FREQUENCY NOT REPORTED
     Route: 065

REACTIONS (3)
  - Movement disorder [Unknown]
  - Heart rate decreased [Unknown]
  - Off label use [Unknown]
